FAERS Safety Report 8107158-1 (Version None)
Quarter: 2011Q4

REPORT INFORMATION
  Report Type: 
  Country: None (occurrence: None)
  Receive Date: 20111223
  Receipt Date: 20110419
  Transmission Date: 20120403
  Serious: Yes (Other)
  Sender: FDA-Public Use
  Company Number: PHHY2011US34954

PATIENT
  Sex: Male

DRUGS (4)
  1. FOCALIN XR [Suspect]
     Dosage: 15 MG ; 30 MG, QD
  2. GUANFACINE HYDROCHLORIDE [Suspect]
     Dosage: 1 ML
  3. FOCALIN [Suspect]
     Dosage: 10 MG, BID ; 30 MG (15 MG ONE TABLET AND 1/2 TABLET IN THE MORNING AND 15 MG)
     Dates: end: 20110406
  4. VYVANSE [Suspect]
     Indication: ATTENTION DEFICIT/HYPERACTIVITY DISORDER
     Dates: start: 20101214

REACTIONS (7)
  - CONSTIPATION [None]
  - PSYCHOTIC DISORDER [None]
  - WEIGHT DECREASED [None]
  - DRUG EFFECT DECREASED [None]
  - INSOMNIA [None]
  - HALLUCINATION [None]
  - FEAR [None]
